FAERS Safety Report 16599715 (Version 1)
Quarter: 2019Q3

REPORT INFORMATION
  Report Type: Spontaneous
  Country: FR (occurrence: FR)
  Receive Date: 20190719
  Receipt Date: 20190719
  Transmission Date: 20191004
  Serious: Yes (Hospitalization)
  Sender: FDA-Public Use
  Company Number: FR-AMGEN-FRASP2019113403

PATIENT
  Age: 59 Year
  Sex: Female
  Weight: 82 kg

DRUGS (4)
  1. FASLODEX [Suspect]
     Active Substance: FULVESTRANT
     Indication: BREAST CANCER METASTATIC
     Dosage: 2 DOSAGE FORM, Q2WK
     Route: 030
     Dates: start: 20190505, end: 20190529
  2. XGEVA [Suspect]
     Active Substance: DENOSUMAB
     Indication: METASTASES TO BONE
     Dosage: 1 DOSAGE FORM, Q4WK
     Route: 058
     Dates: start: 201705, end: 201904
  3. TAMOXIFENE [TAMOXIFEN] [Concomitant]
     Indication: OESTROGEN RECEPTOR POSITIVE BREAST CANCER
     Route: 048
     Dates: start: 201702, end: 201904
  4. IBRANCE [Suspect]
     Active Substance: PALBOCICLIB
     Indication: BREAST CANCER METASTATIC
     Dosage: 21 DOSAGE FORM, Q4WK
     Route: 048
     Dates: start: 20190505, end: 20190525

REACTIONS (2)
  - Pulmonary embolism [Recovered/Resolved]
  - Deep vein thrombosis [Recovered/Resolved]

NARRATIVE: CASE EVENT DATE: 20190527
